FAERS Safety Report 6662934 (Version 2)
Quarter: 2014Q3

REPORT INFORMATION
  Report Type: Spontaneous
  Country: US (occurrence: None)
  Receive Date: 20080527
  Receipt Date: 20140827
  Transmission Date: 20150326
  Serious: Yes (Hospitalization, Other)
  Sender: FDA-Public Use
  Company Number: 2008S1005014

PATIENT
  Age: 62 Year
  Sex: Female
  Weight: 57 kg

DRUGS (8)
  1. ALTACE (RAMIPRIL) [Concomitant]
  2. SODIUM PHOSPHATE, DIBASIC [Suspect]
     Active Substance: SODIUM PHOSPHATE, DIBASIC
     Indication: COLONOSCOPY
     Dosage: 1 IN TOTAL, ORAL
     Route: 048
     Dates: start: 200408, end: 200408
  3. LANTUS [Concomitant]
     Active Substance: INSULIN GLARGINE
  4. FERROUS SULFATE [Concomitant]
     Active Substance: FERROUS SULFATE\FERROUS SULFATE, DRIED
  5. SYNTHROID [Concomitant]
     Active Substance: LEVOTHYROXINE SODIUM
  6. HUMULIN (INSULIN HUMAN, INSULIN HUMAN INJECTION, ISOPHANE) [Concomitant]
  7. HUMALOG [Concomitant]
     Active Substance: INSULIN LISPRO
  8. CARDIAZEM (DILTIAZEM) [Concomitant]

REACTIONS (11)
  - Gallbladder polyp [None]
  - Fat embolism [None]
  - Renal failure acute [None]
  - Hiatus hernia [None]
  - Cholecystitis acute [None]
  - Renal artery stenosis [None]
  - Renal failure [None]
  - Gastritis [None]
  - Cholelithiasis [None]
  - Haemorrhoids [None]
  - Abdominal pain [None]

NARRATIVE: CASE EVENT DATE: 20040930
